FAERS Safety Report 5804324-2 (Version None)
Quarter: 2008Q3

REPORT INFORMATION
  Report Type: 
  Country: None (occurrence: None)
  Receive Date: 20080707
  Receipt Date: 20080707
  Transmission Date: 20090109
  Serious: Yes (Hospitalization)
  Sender: FDA-Public Use
  Company Number: None

PATIENT
  Sex: Male
  Weight: 78 kg

DRUGS (2)
  1. CASODEX [Suspect]
     Dosage: 1500 MG
  2. ZOLADEX [Suspect]
     Dosage: 3.6 MG

REACTIONS (6)
  - DIALYSIS [None]
  - ENDOCRINE DISORDER [None]
  - GENERAL PHYSICAL HEALTH DETERIORATION [None]
  - INTESTINAL PERFORATION [None]
  - RECTAL NEOPLASM [None]
  - RENAL FAILURE [None]
